FAERS Safety Report 21960479 (Version 1)
Quarter: 2023Q1

REPORT INFORMATION
  Report Type: Spontaneous
  Country: FR (occurrence: FR)
  Receive Date: 20230207
  Receipt Date: 20230207
  Transmission Date: 20230417
  Serious: Yes (Hospitalization, Other)
  Sender: FDA-Public Use
  Company Number: FR-DENTSPLY-2023SCDP000026

PATIENT
  Age: 34 Year
  Sex: Female

DRUGS (4)
  1. MEPIVACAINE HYDROCHLORIDE [Suspect]
     Active Substance: MEPIVACAINE HYDROCHLORIDE
     Indication: Local anaesthesia
     Dosage: 1 DOSAGE FORM OF SCANDONEST 30 MG/ML, SOLUTION FOR INJECTION (INFERIOR ALVEOLAR NERVE BLOCK) FOR DEN
     Route: 004
     Dates: start: 200810
  2. 1,3,5-TRIMETHOXYBENZENE [Concomitant]
     Active Substance: 1,3,5-TRIMETHOXYBENZENE
     Indication: Product used for unknown indication
     Dosage: UNK
  3. POLYETHYLENE GLYCOLS [Concomitant]
     Active Substance: POLYETHYLENE GLYCOLS
     Indication: Product used for unknown indication
     Dosage: UNK MACROGOL 40000
  4. PHLOROGLUCINOL [Concomitant]
     Active Substance: PHLOROGLUCINOL
     Indication: Product used for unknown indication
     Dosage: UNK

REACTIONS (5)
  - Bell^s palsy [Recovered/Resolved]
  - Oral discomfort [Recovered/Resolved]
  - Exposure during pregnancy [Unknown]
  - Eyelid ptosis [Recovered/Resolved]
  - Facial asymmetry [Recovered/Resolved]

NARRATIVE: CASE EVENT DATE: 20081001
